FAERS Safety Report 26198385 (Version 1)
Quarter: 2025Q4

REPORT INFORMATION
  Report Type: Spontaneous
  Country: JP (occurrence: JP)
  Receive Date: 20251224
  Receipt Date: 20251224
  Transmission Date: 20260117
  Serious: Yes (Other)
  Sender: PFIZER
  Company Number: JP-PFIZER INC-PV202500147549

PATIENT
  Age: 72 Year
  Sex: Female

DRUGS (4)
  1. FLUCONAZOLE [Interacting]
     Active Substance: FLUCONAZOLE
     Indication: Antifungal prophylaxis
  2. GILTERITINIB [Interacting]
     Active Substance: GILTERITINIB
     Indication: Acute myeloid leukaemia recurrent
     Dosage: 120 MG/BODY
     Route: 048
  3. GILTERITINIB [Interacting]
     Active Substance: GILTERITINIB
     Dosage: 80 MG/BODY
     Route: 048
  4. GILTERITINIB [Interacting]
     Active Substance: GILTERITINIB
     Dosage: 40 MG/BODY
     Route: 048

REACTIONS (2)
  - Drug interaction [Unknown]
  - Electrocardiogram QT prolonged [Recovered/Resolved]
